FAERS Safety Report 11061670 (Version 1)
Quarter: 2015Q2

REPORT INFORMATION
  Report Type: Spontaneous
  Country: US (occurrence: None)
  Receive Date: 20150423
  Receipt Date: 20150423
  Transmission Date: 20150821
  Serious: Yes (Disabling)
  Sender: FDA-Public Use
  Company Number: None

PATIENT
  Age: 68 Year
  Sex: Male
  Weight: 136.08 kg

DRUGS (14)
  1. DEXILANT [Suspect]
     Active Substance: DEXLANSOPRAZOLE
     Indication: GASTROOESOPHAGEAL REFLUX DISEASE
     Route: 048
     Dates: start: 20141001, end: 20150331
  2. LOSARTAN (COZAR) [Concomitant]
  3. VITAMIN D3 [Suspect]
     Active Substance: CHOLECALCIFEROL
  4. ULORIC [Concomitant]
     Active Substance: FEBUXOSTAT
  5. LEVOTHYROXINE [Concomitant]
     Active Substance: LEVOTHYROXINE
  6. CELEBREX [Concomitant]
     Active Substance: CELECOXIB
  7. VITACIRC-B 2-3 FOLBIC [Concomitant]
  8. MULTI-VITAMIN [Suspect]
     Active Substance: .ALPHA.-TOCOPHEROL ACETATE, DL-\ASCORBIC ACID\CYANOCOBALAMIN\FLUORIDE ION\FOLIC ACID\NIACIN\PYRIDOXINE\RIBOFLAVIN\THIAMINE\VITAMIN A\VITAMIN D
  9. ALTACE [Concomitant]
     Active Substance: RAMIPRIL
  10. NORVASC (AMLODIPINE) [Concomitant]
  11. GABAPENTIN. [Concomitant]
     Active Substance: GABAPENTIN
  12. COQ10 [Suspect]
     Active Substance: UBIDECARENONE
  13. SIMVASTATIN. [Concomitant]
     Active Substance: SIMVASTATIN
  14. OMEGA-3 ACIDS [Suspect]
     Active Substance: OMEGA-3 FATTY ACIDS

REACTIONS (2)
  - Atrial flutter [None]
  - Blood magnesium decreased [None]

NARRATIVE: CASE EVENT DATE: 20150407
